FAERS Safety Report 4423003-X (Version None)
Quarter: 2004Q3

REPORT INFORMATION
  Report Type: 
  Country: None (occurrence: None)
  Receive Date: 20040811
  Receipt Date: 20040803
  Transmission Date: 20050211
  Serious: Yes (Hospitalization)
  Sender: FDA-Public Use
  Company Number: DE-JNJFOC-20040301598

PATIENT
  Age: 35 Year
  Sex: Male

DRUGS (6)
  1. HALDOL [Suspect]
     Route: 049
  2. HALDOL [Suspect]
     Route: 049
  3. HALDOL [Suspect]
     Route: 049
  4. HALDOL [Suspect]
     Route: 049
  5. HALDOL [Suspect]
     Route: 049
  6. TAVOR [Concomitant]
     Indication: DRUG USE FOR UNKNOWN INDICATION
     Route: 049

REACTIONS (1)
  - NEUTROPENIA [None]
